FAERS Safety Report 4642173-1 (Version None)
Quarter: 2005Q2

REPORT INFORMATION
  Report Type: 
  Country: None (occurrence: None)
  Receive Date: 20050420
  Receipt Date: 20050407
  Transmission Date: 20051028
  Serious: Yes (Hospitalization, Disabling)
  Sender: FDA-Public Use
  Company Number: 2005AP01987

PATIENT
  Age: 57 Year
  Sex: Female

DRUGS (8)
  1. IRESSA [Suspect]
     Indication: LUNG NEOPLASM MALIGNANT
     Dosage: 250 MG DAILY PO
     Route: 048
     Dates: start: 20031110, end: 20050328
  2. RABEPRAZOLE SODIUM [Concomitant]
  3. ALFAROL [Concomitant]
  4. BENET [Concomitant]
  5. LAMISIL [Concomitant]
  6. MAGNESIUM OXIDE [Concomitant]
  7. TULOBUTEROL [Concomitant]
  8. RADIOTHERAPY [Concomitant]

REACTIONS (6)
  - ARTERIAL OCCLUSIVE DISEASE [None]
  - DEEP VEIN THROMBOSIS [None]
  - DISSEMINATED INTRAVASCULAR COAGULATION [None]
  - PROTHROMBIN TIME SHORTENED [None]
  - TUMOUR EMBOLISM [None]
  - VASCULITIS [None]
